FAERS Safety Report 8254997-2 (Version None)
Quarter: 2012Q1

REPORT INFORMATION
  Report Type: 
  Country: None (occurrence: None)
  Receive Date: 20120329
  Receipt Date: 20120314
  Transmission Date: 20120608
  Serious: Yes (Hospitalization)
  Sender: FDA-Public Use
  Company Number: 2012S1000012

PATIENT
  Age: 49 Year
  Sex: Male

DRUGS (5)
  1. TYLENOL [Concomitant]
  2. COLCHICINE [Concomitant]
  3. ANTIHISTAMINES [Concomitant]
  4. KRYSTEXXA [Suspect]
     Indication: GOUT
     Dosage: 8 MG, IV
     Route: 042
     Dates: start: 20110919, end: 20120125
  5. PLAVIX [Concomitant]

REACTIONS (8)
  - GOUT [None]
  - CHEST PAIN [None]
  - NAUSEA [None]
  - ARRHYTHMIA [None]
  - INFUSION RELATED REACTION [None]
  - PALPITATIONS [None]
  - HAEMATEMESIS [None]
  - CONDITION AGGRAVATED [None]
